FAERS Safety Report 6268050-0 (Version None)
Quarter: 2009Q3

REPORT INFORMATION
  Report Type: 
  Country: None (occurrence: None)
  Receive Date: 20090713
  Receipt Date: 20090703
  Transmission Date: 20100115
  Serious: Yes (Disabling)
  Sender: FDA-Public Use
  Company Number: 2009-199573-NL

PATIENT
  Age: 52 Year
  Sex: Male

DRUGS (1)
  1. VECURONIUM BROMIDE [Suspect]
     Dosage: 50 MG INTRAVENOUS (NOS)
     Route: 042
     Dates: start: 20080123, end: 20080125

REACTIONS (3)
  - PULMONARY EMBOLISM [None]
  - RENAL FAILURE [None]
  - RHABDOMYOLYSIS [None]
